FAERS Safety Report 7504109-5 (Version None)
Quarter: 2011Q2

REPORT INFORMATION
  Report Type: 
  Country: None (occurrence: None)
  Receive Date: 20110520
  Receipt Date: 20110512
  Transmission Date: 20111010
  Serious: Yes (Hospitalization)
  Sender: FDA-Public Use
  Company Number: PHHO2011AU07920

PATIENT
  Sex: Male

DRUGS (12)
  1. SUNITINIB MALATE [Suspect]
     Indication: RENAL CELL CARCINOMA
     Dosage: UNK
     Route: 048
  2. SUNITINIB MALATE [Suspect]
     Dosage: 50 MG, QD
     Dates: start: 20110507
  3. FISH OIL [Concomitant]
  4. CALCIUM CARBONATE [Concomitant]
  5. PANTOPRAZOLE [Concomitant]
  6. AFINITOR [Suspect]
     Indication: RENAL CELL CARCINOMA
     Dosage: UNK
     Route: 048
  7. VITAMIN D [Concomitant]
  8. PREDNISOLONE [Concomitant]
  9. ASPIRIN [Concomitant]
  10. MULTI-VITAMIN [Concomitant]
  11. ALPHAPRIL [Concomitant]
  12. PANAMAX [Concomitant]

REACTIONS (1)
  - HAEMATEMESIS [None]
